FAERS Safety Report 5491306-6 (Version None)
Quarter: 2007Q4

REPORT INFORMATION
  Report Type: 
  Country: None (occurrence: None)
  Receive Date: 20071019
  Receipt Date: 20070920
  Transmission Date: 20080405
  Serious: No
  Sender: FDA-Public Use
  Company Number: US-BOEHRINGER INGELHEIM PHARMACEUTICALS, INC.-2006-BP-10134BP

PATIENT
  Sex: Female

DRUGS (55)
  1. MIRAPEX [Suspect]
     Indication: PARKINSON'S DISEASE
     Route: 048
     Dates: start: 20040826, end: 20050801
  2. SINEMET [Concomitant]
     Indication: PARKINSON'S DISEASE
     Route: 048
     Dates: start: 20040410
  3. SINEMET CR [Concomitant]
     Indication: PARKINSON'S DISEASE
     Route: 048
     Dates: start: 20050121
  4. CARBIDOPA AND LEVODOPA [Concomitant]
     Indication: PARKINSON'S DISEASE
     Dates: start: 20051010
  5. COMTAN [Concomitant]
     Indication: PARKINSON'S DISEASE
     Dates: start: 20051010
  6. KWO-6002 [Concomitant]
     Indication: PARKINSON'S DISEASE
     Route: 048
     Dates: start: 20050719
  7. VITAMIN B-12 [Concomitant]
  8. CELEXA [Concomitant]
     Dates: start: 20021111
  9. ASCORBIC ACID [Concomitant]
     Indication: PROPHYLAXIS
  10. FLU VACCINE [Concomitant]
  11. ALEVE [Concomitant]
     Dates: start: 20040410
  12. MACROBID [Concomitant]
  13. XANAX [Concomitant]
     Indication: ANXIETY
  14. BENTYL [Concomitant]
  15. ELAVIL [Concomitant]
  16. MOBIC [Concomitant]
  17. KLOR-CON M20 [Concomitant]
     Dates: start: 20050804
  18. LEXAPRO [Concomitant]
  19. PROTONIX [Concomitant]
     Dates: start: 20050927
  20. SENOKOT [Concomitant]
     Indication: CONSTIPATION
     Dates: start: 20051101
  21. RESTORIL [Concomitant]
     Indication: INSOMNIA
     Dates: start: 20051114
  22. MAGNESIUM CITRATE [Concomitant]
     Route: 048
  23. PREVACID [Concomitant]
  24. PREMARIN [Concomitant]
     Route: 067
  25. NEURONTIN [Concomitant]
     Indication: PARAESTHESIA
  26. DULCOLAX [Concomitant]
     Indication: BOWEL PREPARATION
     Route: 048
     Dates: start: 20060614, end: 20060614
  27. LASIX [Concomitant]
     Indication: OEDEMA
     Dates: start: 20050806
  28. ADRENAL STIMULANT [Concomitant]
     Indication: ENERGY INCREASED
     Dates: end: 20040101
  29. ADRENAL STIMULANT [Concomitant]
     Indication: BLOOD PRESSURE ABNORMAL
  30. HDROZYME [Concomitant]
     Indication: FLATULENCE
     Dates: start: 20040904
  31. HDROZYME [Concomitant]
     Indication: ABDOMINAL DISTENSION
  32. HDROZYME [Concomitant]
     Indication: DYSPEPSIA
  33. BETAINE PLUS [Concomitant]
     Indication: FLATULENCE
  34. BETAINE PLUS [Concomitant]
     Indication: ABDOMINAL DISTENSION
  35. BETAINE PLUS [Concomitant]
     Indication: DYSPEPSIA
  36. FLAX SEED CAPSULE [Concomitant]
     Indication: ARTHRITIS
     Dates: start: 20040914
  37. VITALZYME-SERRA PEPTASE [Concomitant]
     Indication: INFLAMMATION
     Dates: start: 20040904
  38. VITALZYME-SERRA PEPTASE [Concomitant]
     Indication: POOR PERIPHERAL CIRCULATION
  39. LEVOFLOXACIN [Concomitant]
     Route: 042
     Dates: start: 20051001
  40. DEXTROSE [Concomitant]
     Route: 042
     Dates: start: 20051001
  41. TYLENOL (CAPLET) [Concomitant]
  42. DARVOCET-N 100 [Concomitant]
     Dates: start: 20041015, end: 20041018
  43. PARAFORN FORTE DSC [Concomitant]
     Dates: start: 20041015, end: 20041018
  44. CIPRO [Concomitant]
     Indication: URINARY TRACT INFECTION
     Dates: start: 20041101, end: 20041107
  45. LINAZA HERBALLAX [Concomitant]
     Indication: CONSTIPATION
     Dates: start: 20031201
  46. ALLEGRA [Concomitant]
     Indication: SEASONAL ALLERGY
     Dates: start: 20050114, end: 20050122
  47. LEVAQUIN [Concomitant]
     Indication: URINARY TRACT INFECTION
     Dates: start: 20050121, end: 20050123
  48. LEVAQUIN [Concomitant]
     Dates: start: 20050221, end: 20050223
  49. AMOXICILLIN [Concomitant]
     Indication: HELICOBACTER INFECTION
     Dates: start: 20051101, end: 20051114
  50. CLARITHROMYCIN [Concomitant]
     Indication: HELICOBACTER INFECTION
     Dates: start: 20051101, end: 20051114
  51. PROTONIX [Concomitant]
     Indication: HELICOBACTER INFECTION
     Dates: start: 20051101
  52. DIFLUCAN [Concomitant]
     Dates: start: 20050228
  53. RELAFEN [Concomitant]
     Dates: start: 20060206
  54. GLUCOSAMINE [Concomitant]
  55. PROCAINE HCL [Concomitant]

REACTIONS (3)
  - DEPRESSION [None]
  - OBSESSIVE-COMPULSIVE DISORDER [None]
  - PATHOLOGICAL GAMBLING [None]
